FAERS Safety Report 22065007 (Version 1)
Quarter: 2023Q1

REPORT INFORMATION
  Report Type: Spontaneous
  Country: AU (occurrence: AU)
  Receive Date: 20230306
  Receipt Date: 20230306
  Transmission Date: 20230417
  Serious: Yes (Other)
  Sender: FDA-Public Use
  Company Number: AU-AMERICAN REGENT INC-2023000555

PATIENT
  Sex: Female

DRUGS (1)
  1. FERINJECT [Suspect]
     Active Substance: FERRIC CARBOXYMALTOSE
     Indication: Product used for unknown indication
     Dosage: UNK
     Dates: start: 202302, end: 202302

REACTIONS (3)
  - Peripheral swelling [Unknown]
  - Infusion site discolouration [Unknown]
  - Urticaria [Unknown]

NARRATIVE: CASE EVENT DATE: 20230201
